FAERS Safety Report 19141144 (Version 5)
Quarter: 2021Q3

REPORT INFORMATION
  Report Type: Spontaneous
  Country: JP (occurrence: JP)
  Receive Date: 20210415
  Receipt Date: 20210809
  Transmission Date: 20211014
  Serious: Yes (Other)
  Sender: FDA-Public Use
  Company Number: JP-OTSUKA-2021_011969

PATIENT
  Age: 28 Year
  Sex: Female

DRUGS (12)
  1. ABILIFY MAINTENA [Suspect]
     Active Substance: ARIPIPRAZOLE
     Dosage: 400MG/SHOT
     Route: 030
     Dates: start: 20201007, end: 20201202
  2. SYCREST [Suspect]
     Active Substance: ASENAPINE MALEATE
     Indication: PRODUCT USED FOR UNKNOWN INDICATION
     Dosage: 5 MG, QD
     Route: 048
     Dates: start: 20171102, end: 20171228
  3. AKINETON [Concomitant]
     Active Substance: BIPERIDEN HYDROCHLORIDE
     Indication: PRODUCT USED FOR UNKNOWN INDICATION
     Dosage: 1 MG, QD
     Route: 048
     Dates: start: 20200421, end: 20210317
  4. ABILIFY MAINTENA [Suspect]
     Active Substance: ARIPIPRAZOLE
     Indication: SCHIZOPHRENIA
     Dosage: 300MG/SHOT
     Route: 030
     Dates: start: 20200714, end: 20200908
  5. SEDIEL [Concomitant]
     Active Substance: TANDOSPIRONE
     Indication: PRODUCT USED FOR UNKNOWN INDICATION
     Dosage: 10 MG, QD
     Route: 048
     Dates: start: 20210407
  6. ABILIFY MAINTENA [Suspect]
     Active Substance: ARIPIPRAZOLE
     Dosage: 300MG/SHOT
     Route: 030
     Dates: start: 20210106
  7. REXULTI [Suspect]
     Active Substance: BREXPIPRAZOLE
     Indication: PRODUCT USED FOR UNKNOWN INDICATION
     Dosage: 1MG, DAILY DOSE
     Route: 048
     Dates: start: 20180419, end: 20180531
  8. ABILIFY MAINTENA [Suspect]
     Active Substance: ARIPIPRAZOLE
     Indication: SCHIZOPHRENIA
     Dosage: 400MG/SHOT
     Route: 030
     Dates: start: 20170511, end: 20200616
  9. DIAZEPAM. [Concomitant]
     Active Substance: DIAZEPAM
     Indication: PRODUCT USED FOR UNKNOWN INDICATION
     Dosage: UNK
     Route: 065
  10. ABILIFY [Suspect]
     Active Substance: ARIPIPRAZOLE
     Indication: PRODUCT USED FOR UNKNOWN INDICATION
     Dosage: RANGE FROM 12 MG TO 30 MG ADJUSTED
     Route: 048
     Dates: start: 20160901, end: 20170608
  11. REXULTI [Suspect]
     Active Substance: BREXPIPRAZOLE
     Dosage: 1MG, DAILY DOSE
     Route: 048
     Dates: start: 20181101, end: 20200519
  12. REXULTI [Suspect]
     Active Substance: BREXPIPRAZOLE
     Indication: PRODUCT USED FOR UNKNOWN INDICATION
     Dosage: 2MG, DAILY DOSE
     Route: 048
     Dates: start: 20180614, end: 20181004

REACTIONS (3)
  - Delusion of reference [Recovered/Resolved]
  - Irritability [Recovered/Resolved]
  - Oculogyric crisis [Not Recovered/Not Resolved]

NARRATIVE: CASE EVENT DATE: 20170615
